FAERS Safety Report 17706795 (Version 1)
Quarter: 2020Q2

REPORT INFORMATION
  Report Type: Spontaneous
  Country: DE (occurrence: DE)
  Receive Date: 20200424
  Receipt Date: 20200424
  Transmission Date: 20200714
  Serious: Yes (Disabling, Other)
  Sender: FDA-Public Use
  Company Number: DE-BRISTOL-MYERS SQUIBB COMPANY-BMS-2020-032862

PATIENT
  Age: 80 Year
  Sex: Male
  Weight: 77 kg

DRUGS (8)
  1. MARCUMAR [Suspect]
     Active Substance: PHENPROCOUMON
     Indication: ATRIAL FIBRILLATION
     Dosage: 1.5 MILLIGRAM, QD
     Route: 048
     Dates: start: 200703, end: 20200302
  2. ATACAND [Concomitant]
     Active Substance: CANDESARTAN CILEXETIL
     Indication: HYPERTENSION
     Dosage: 4 MILLIGRAM
     Route: 048
     Dates: start: 2007, end: 2008
  3. NEBILET [Concomitant]
     Active Substance: NEBIVOLOL
     Indication: MITRAL VALVE DISEASE
     Dosage: 1.5 MILLIGRAM
     Route: 048
     Dates: start: 2007
  4. ELIQUIS [Suspect]
     Active Substance: APIXABAN
     Indication: CEREBROVASCULAR ACCIDENT PROPHYLAXIS
     Dosage: 2.5 MILLIGRAM, BID
     Route: 048
     Dates: start: 20200304
  5. LIXIANA [Concomitant]
     Active Substance: EDOXABAN TOSYLATE
     Indication: ATRIAL FIBRILLATION
     Dosage: 60 MILLIGRAM (1X)
     Route: 048
     Dates: start: 2016, end: 2017
  6. NEBILET [Concomitant]
     Active Substance: NEBIVOLOL
     Indication: ATRIAL FIBRILLATION
     Dosage: 5 MILLIGRAM (1.25 MG)
     Route: 048
     Dates: start: 2007
  7. SIMVASTATIN. [Concomitant]
     Active Substance: SIMVASTATIN
     Indication: HYPERLIPIDAEMIA
     Dosage: 10 MILLIGRAM
     Route: 048
     Dates: start: 2007, end: 2007
  8. BISOPROLOL [Concomitant]
     Active Substance: BISOPROLOL
     Indication: ATRIAL FIBRILLATION
     Dosage: 5 MILLIGRAM (2.5 MG)
     Route: 048
     Dates: start: 2007, end: 2007

REACTIONS (10)
  - Paraesthesia [Unknown]
  - Polyneuropathy [Unknown]
  - Movement disorder [Unknown]
  - Paralysis [Unknown]
  - Walking disability [Unknown]
  - Hypoaesthesia [Unknown]
  - Condition aggravated [Unknown]
  - Peripheral coldness [Unknown]
  - Dizziness [Unknown]
  - Panic attack [Unknown]

NARRATIVE: CASE EVENT DATE: 20191209
